FAERS Safety Report 15291880 (Version 2)
Quarter: 2018Q3

REPORT INFORMATION
  Report Type: Spontaneous
  Country: BR (occurrence: BR)
  Receive Date: 20180817
  Receipt Date: 20180824
  Transmission Date: 20181010
  Serious: Yes (Other)
  Sender: FDA-Public Use
  Company Number: BR-GILEAD-2018-0356177

PATIENT
  Age: 57 Year
  Sex: Male
  Weight: 65 kg

DRUGS (6)
  1. DACLATASVIR. [Suspect]
     Active Substance: DACLATASVIR
     Dosage: 60 MG, UNK
     Route: 048
     Dates: start: 201710, end: 201803
  2. PROPANOLOL                         /00030001/ [Concomitant]
     Active Substance: PROPRANOLOL HYDROCHLORIDE
     Dosage: UNK
     Route: 048
     Dates: start: 201706
  3. DACLATASVIR. [Suspect]
     Active Substance: DACLATASVIR
     Indication: CHRONIC HEPATITIS C
     Dosage: 60 MG, UNK
     Route: 048
     Dates: start: 201706, end: 201803
  4. RIBAVIRIN. [Suspect]
     Active Substance: RIBAVIRIN
     Indication: CHRONIC HEPATITIS C
     Dosage: UNK
     Route: 048
     Dates: start: 201706, end: 201803
  5. SOVALDI [Suspect]
     Active Substance: SOFOSBUVIR
     Indication: CHRONIC HEPATITIS C
     Dosage: 400 MG, UNK
     Route: 048
     Dates: start: 201706, end: 201803
  6. SOVALDI [Suspect]
     Active Substance: SOFOSBUVIR
     Dosage: 400 UNK, UNK
     Route: 048
     Dates: start: 201710, end: 201803

REACTIONS (3)
  - Genotype drug resistance test positive [Unknown]
  - Drug ineffective [Unknown]
  - Intentional product use issue [Recovered/Resolved]

NARRATIVE: CASE EVENT DATE: 201706
